FAERS Safety Report 7576973-5 (Version None)
Quarter: 2011Q2

REPORT INFORMATION
  Report Type: 
  Country: None (occurrence: None)
  Receive Date: 20110628
  Receipt Date: 20100318
  Transmission Date: 20111010
  Serious: Yes (Other)
  Sender: FDA-Public Use
  Company Number: US-BAYER-200924436NA

PATIENT
  Age: 69 Year
  Sex: Female
  Weight: 82.727 kg

DRUGS (43)
  1. CONTRAST MEDIA [Suspect]
     Dates: start: 20060401, end: 20060401
  2. CONTRAST MEDIA [Suspect]
     Dates: start: 20071219, end: 20071219
  3. ANALGESICS [Concomitant]
     Indication: PAIN
  4. ALL OTHER THERAPEUTIC PRODUCTS [Concomitant]
  5. NEPHROCAPS [Concomitant]
  6. NAPROXEN (ALEVE) [Concomitant]
  7. SEVELAMER [Concomitant]
  8. SENSIPAR [Concomitant]
  9. BENADRYL [Concomitant]
  10. RENVELA [Concomitant]
  11. MULTIHANCE [Suspect]
     Indication: NUCLEAR MAGNETIC RESONANCE IMAGING
  12. CONTRAST MEDIA [Suspect]
     Indication: NUCLEAR MAGNETIC RESONANCE IMAGING
     Dates: start: 19980101, end: 19980101
  13. RENAGEL [Concomitant]
  14. CINACALCET [Concomitant]
  15. PAROXETINE HCL [Concomitant]
  16. MAGNEVIST [Suspect]
     Indication: NUCLEAR MAGNETIC RESONANCE IMAGING
     Dates: start: 20030616, end: 20030616
  17. PROHANCE [Suspect]
     Indication: PAIN
  18. PAXIL [Concomitant]
  19. NEURONTIN [Concomitant]
  20. RENAGEL [Concomitant]
  21. ZOCOR [Concomitant]
  22. CALCITONIN [Concomitant]
  23. PRAVASTATIN [Concomitant]
  24. PRAVACHOL [Concomitant]
  25. MIDODRINE HYDROCHLORIDE [Concomitant]
  26. METAMUCIL-2 [Concomitant]
  27. OPTIMARK [Suspect]
     Indication: NUCLEAR MAGNETIC RESONANCE IMAGING
  28. COUMADIN [Concomitant]
  29. SINEMET [Concomitant]
  30. SULFASALAZINE [Concomitant]
  31. MAGNEVIST [Suspect]
     Dosage: UNK
     Dates: start: 20030501, end: 20030501
  32. OMNISCAN [Suspect]
     Dosage: UNK
     Dates: start: 19981015, end: 19981015
  33. CONTRAST MEDIA [Suspect]
     Dates: start: 20080101, end: 20080101
  34. NITROTAB [Concomitant]
  35. UNKNOWN DRUG [Concomitant]
  36. CALCITRIOL [Concomitant]
  37. MAGNEVIST [Suspect]
     Indication: NUCLEAR MAGNETIC RESONANCE IMAGING BRAIN
     Dates: start: 20071106, end: 20071106
  38. OMNISCAN [Suspect]
     Indication: NUCLEAR MAGNETIC RESONANCE IMAGING
     Dosage: UNK
  39. CLONAZEPAM [Concomitant]
  40. SYNTHROID [Concomitant]
  41. EPOGEN [Concomitant]
     Dates: start: 19990101
  42. FERROUS SULFATE TAB [Concomitant]
     Dates: start: 19990101
  43. TYLENOL REGULAR [Concomitant]

REACTIONS (36)
  - DEFORMITY [None]
  - SKIN DISCOLOURATION [None]
  - SKIN FIBROSIS [None]
  - SPONDYLITIS [None]
  - NODULE [None]
  - AREFLEXIA [None]
  - BACK PAIN [None]
  - MUSCULAR WEAKNESS [None]
  - RASH PAPULAR [None]
  - VASODILATATION [None]
  - NEUROPATHY PERIPHERAL [None]
  - NEPHROGENIC SYSTEMIC FIBROSIS [None]
  - PURPURA [None]
  - BALANCE DISORDER [None]
  - DRY SKIN [None]
  - PAIN IN EXTREMITY [None]
  - OEDEMA PERIPHERAL [None]
  - PRURITUS [None]
  - SKIN HYPERTROPHY [None]
  - SKIN PLAQUE [None]
  - MOBILITY DECREASED [None]
  - EXERCISE TOLERANCE DECREASED [None]
  - SCAR [None]
  - RASH [None]
  - HYPOAESTHESIA [None]
  - ECZEMA [None]
  - SKIN BURNING SENSATION [None]
  - OCULAR ICTERUS [None]
  - RASH MACULAR [None]
  - INDURATION [None]
  - SKIN INDURATION [None]
  - ERYTHEMA [None]
  - GAIT DISTURBANCE [None]
  - HIP FRACTURE [None]
  - ARTHRALGIA [None]
  - HYPERKERATOSIS [None]
